FAERS Safety Report 8888088 (Version 2)
Quarter: 2012Q4

REPORT INFORMATION
  Report Type: 
  Country: US (occurrence: US)
  Receive Date: 20121106
  Receipt Date: 20121214
  Transmission Date: 20130627
  Serious: Yes (Hospitalization, Other)
  Sender: FDA-Public Use
  Company Number: US-PFIZER INC-2012276472

PATIENT
  Age: 45 Year
  Sex: Female
  Weight: 57.14 kg

DRUGS (3)
  1. LYRICA [Suspect]
     Indication: FIBROMYALGIA
     Dosage: 50 mg, 3x/day
     Route: 048
     Dates: start: 201110
  2. ULTRAM [Concomitant]
     Dosage: 50 mg, 3x/day
  3. FLEXERIL [Concomitant]
     Dosage: 10 mg, 3x/day

REACTIONS (2)
  - Functional gastrointestinal disorder [Recovering/Resolving]
  - Uterine disorder [Unknown]
